FAERS Safety Report 8372274-6 (Version None)
Quarter: 2012Q2

REPORT INFORMATION
  Report Type: 
  Country: None (occurrence: None)
  Receive Date: 20120521
  Receipt Date: 20120514
  Transmission Date: 20120825
  Serious: Yes (Hospitalization, Other)
  Sender: FDA-Public Use
  Company Number: US-BAYER-2011-029774

PATIENT
  Age: 47 Year
  Sex: Female
  Weight: 132 kg

DRUGS (5)
  1. YASMIN [Suspect]
     Indication: MENORRHAGIA
     Dosage: UNK
     Dates: start: 20080401, end: 20090701
  2. SPIRONOLACTONE [Concomitant]
     Indication: HYPERTRICHOSIS
  3. SPIRONOLACTONE [Concomitant]
     Indication: ACNE
     Dosage: UNK
  4. YAZ [Suspect]
     Indication: MENORRHAGIA
     Dosage: UNK
     Dates: start: 20080401, end: 20090701
  5. YAZ [Suspect]

REACTIONS (10)
  - PLEURISY [None]
  - MENTAL DISORDER [None]
  - LOSS OF CONSCIOUSNESS [None]
  - ANXIETY [None]
  - PULMONARY EMBOLISM [None]
  - DYSPNOEA [None]
  - CHEST PAIN [None]
  - PLEURAL EFFUSION [None]
  - PAIN [None]
  - GAIT DISTURBANCE [None]
